FAERS Safety Report 9656299 (Version 2)
Quarter: 2013Q4

REPORT INFORMATION
  Report Type: Spontaneous
  Country: US (occurrence: US)
  Receive Date: 20131030
  Receipt Date: 20131111
  Transmission Date: 20140711
  Serious: No
  Sender: FDA-Public Use
  Company Number: US-PFIZER INC-2013307550

PATIENT
  Age: 58 Year
  Sex: Female
  Weight: 60.32 kg

DRUGS (8)
  1. GABAPENTIN [Suspect]
     Indication: FIBROMYALGIA
     Dosage: 300 MG, 3X/DAY
     Dates: start: 2004, end: 201310
  2. GABAPENTIN [Suspect]
     Indication: SCIATICA
  3. GABAPENTIN [Suspect]
     Indication: RHEUMATOID ARTHRITIS
  4. GABAPENTIN [Suspect]
     Indication: DIABETIC NEUROPATHY
  5. LYRICA [Suspect]
     Indication: FIBROMYALGIA
     Dosage: UNK
     Dates: end: 2004
  6. LYRICA [Suspect]
     Indication: SCIATICA
     Dosage: 300 MG, 2X/DAY
     Dates: start: 20131024
  7. LYRICA [Suspect]
     Indication: RHEUMATOID ARTHRITIS
  8. LYRICA [Suspect]
     Indication: DIABETIC NEUROPATHY

REACTIONS (2)
  - Off label use [Unknown]
  - Drug ineffective for unapproved indication [Unknown]
